FAERS Safety Report 5110575-5 (Version None)
Quarter: 2006Q3

REPORT INFORMATION
  Report Type: 
  Country: None (occurrence: None)
  Receive Date: 20060915
  Receipt Date: 20060905
  Transmission Date: 20061208
  Serious: Yes (Other)
  Sender: FDA-Public Use
  Company Number: HQWYE566212SEP06

PATIENT
  Age: 55 Year
  Sex: Female

DRUGS (6)
  1. EFFEXOR XR [Suspect]
     Dosage: 75 MG 1X PER 1 DAY, UNKNOWN
     Dates: start: 20060501
  2. ETHANOL (ETHANOL, ) [Suspect]
  3. ZOCOR [Concomitant]
  4. BONIVA (IBANDRONATE SODIUM) [Concomitant]
  5. XANAX [Concomitant]
  6. HYDROCHLOROTHIAZIDE [Concomitant]

REACTIONS (5)
  - DRUG INEFFECTIVE [None]
  - EMOTIONAL DISTRESS [None]
  - PSYCHIATRIC SYMPTOM [None]
  - SELF-INJURIOUS IDEATION [None]
  - SOMNOLENCE [None]
